FAERS Safety Report 23157569 (Version 2)
Quarter: 2024Q1

REPORT INFORMATION
  Report Type: Report from Study
  Country: US (occurrence: US)
  Receive Date: 20231108
  Receipt Date: 20240311
  Transmission Date: 20240410
  Serious: No
  Sender: FDA-Public Use
  Company Number: US-002147023-NVSC2023US238438

PATIENT
  Sex: Male

DRUGS (1)
  1. ENTRESTO [Suspect]
     Active Substance: SACUBITRIL\VALSARTAN
     Indication: Product used for unknown indication
     Dosage: 24/26, BID
     Route: 065
     Dates: start: 20231009

REACTIONS (5)
  - Blood pressure decreased [Unknown]
  - Dizziness postural [Unknown]
  - Concomitant disease aggravated [Unknown]
  - Musculoskeletal discomfort [Recovering/Resolving]
  - Decreased activity [Unknown]
